FAERS Safety Report 6872042-8 (Version None)
Quarter: 2010Q3

REPORT INFORMATION
  Report Type: 
  Country: None (occurrence: None)
  Receive Date: 20100723
  Receipt Date: 20100713
  Transmission Date: 20110219
  Serious: Yes (Hospitalization)
  Sender: FDA-Public Use
  Company Number: US-PFIZER INC-2010086741

PATIENT
  Age: 65 Year
  Sex: Male
  Weight: 84.09 kg

DRUGS (4)
  1. CAMPTOSAR [Suspect]
     Indication: INTESTINAL ADENOCARCINOMA
     Dosage: 150 MG/M2, EVERY 3 WEEKS
     Route: 042
     Dates: start: 20090903, end: 20091229
  2. XELODA [Suspect]
     Indication: INTESTINAL ADENOCARCINOMA
     Dosage: 1600 MG/M2, CYCLIC
     Route: 048
     Dates: start: 20090903, end: 20100102
  3. ELOXATIN [Suspect]
     Indication: INTESTINAL ADENOCARCINOMA
     Dosage: 100 MG/M2, EVERY 3 WEEKS
     Route: 042
     Dates: start: 20090903, end: 20091229
  4. TPN ELECTROLYTES IN PLASTIC CONTAINER [Concomitant]

REACTIONS (7)
  - AGITATION [None]
  - CHILLS [None]
  - HAEMOGLOBIN [None]
  - NEUTROPHIL COUNT ABNORMAL [None]
  - PYREXIA [None]
  - SEPSIS [None]
  - URINARY TRACT INFECTION [None]
